FAERS Safety Report 20453915 (Version 2)
Quarter: 2022Q3

REPORT INFORMATION
  Report Type: Spontaneous
  Country: AR (occurrence: AR)
  Receive Date: 20220210
  Receipt Date: 20220726
  Transmission Date: 20221026
  Serious: No
  Sender: FDA-Public Use
  Company Number: AR-PFIZER INC-202200063797

PATIENT
  Age: 7 Year
  Sex: Female

DRUGS (2)
  1. GENOTROPIN [Suspect]
     Active Substance: SOMATROPIN
     Indication: Foetal growth restriction
     Dosage: 1-1.4 MG, 7X/WEEK
     Dates: start: 20191023
  2. GENOTROPIN [Suspect]
     Active Substance: SOMATROPIN
     Indication: Short stature

REACTIONS (4)
  - Device information output issue [Unknown]
  - Drug dose omission by device [Unknown]
  - Expired device used [Unknown]
  - Circumstance or information capable of leading to medication error [Unknown]
